FAERS Safety Report 8393205-9 (Version None)
Quarter: 2012Q2

REPORT INFORMATION
  Report Type: 
  Country: None (occurrence: None)
  Receive Date: 20120529
  Receipt Date: 20120524
  Transmission Date: 20120825
  Serious: No
  Sender: FDA-Public Use
  Company Number: US-ABBOTT-12P-163-0938343-00

PATIENT
  Sex: Male
  Weight: 93.07 kg

DRUGS (5)
  1. CIALIS [Concomitant]
     Indication: ERECTILE DYSFUNCTION
  2. ANDROGEL [Suspect]
     Indication: BLOOD TESTOSTERONE DECREASED
     Dosage: 100 MG, TWO PACKETS PER DAY
     Route: 061
     Dates: start: 20100101, end: 20120501
  3. MUSCLE RELAXER [Concomitant]
     Indication: BACK PAIN
  4. SIMVASTATIN [Concomitant]
     Indication: BLOOD CHOLESTEROL INCREASED
  5. ANDROGEL [Suspect]
     Indication: BLOOD TESTOSTERONE DECREASED
     Dosage: 40.5 MG, 2 PUMP ACTUATIONS DAILY
     Route: 061
     Dates: start: 20120501

REACTIONS (1)
  - BLOOD TESTOSTERONE FREE DECREASED [None]
